FAERS Safety Report 21573746 (Version 1)
Quarter: 2022Q4

REPORT INFORMATION
  Report Type: Spontaneous
  Country: DE (occurrence: DE)
  Receive Date: 20221109
  Receipt Date: 20221109
  Transmission Date: 20230113
  Serious: Yes (Other)
  Sender: FDA-Public Use
  Company Number: DE-MYLANLABS-2022M1123243

PATIENT
  Age: 15 Year
  Sex: Female

DRUGS (10)
  1. BUDESONIDE [Suspect]
     Active Substance: BUDESONIDE
     Indication: CTLA4 deficiency
     Dosage: UNK
     Route: 065
  2. BUDESONIDE [Suspect]
     Active Substance: BUDESONIDE
     Indication: Immunosuppressant drug therapy
  3. PREDNISOLONE [Suspect]
     Active Substance: PREDNISOLONE
     Indication: CTLA4 deficiency
     Dosage: UNK
     Route: 048
  4. PREDNISOLONE [Suspect]
     Active Substance: PREDNISOLONE
     Indication: Immunosuppressant drug therapy
  5. INFLIXIMAB [Suspect]
     Active Substance: INFLIXIMAB
     Indication: CTLA4 deficiency
     Dosage: UNK
     Route: 065
  6. INFLIXIMAB [Suspect]
     Active Substance: INFLIXIMAB
     Indication: Immunosuppressant drug therapy
  7. VEDOLIZUMAB [Suspect]
     Active Substance: VEDOLIZUMAB
     Indication: CTLA4 deficiency
     Dosage: UNK
     Route: 065
  8. VEDOLIZUMAB [Suspect]
     Active Substance: VEDOLIZUMAB
     Indication: Immunosuppressant drug therapy
  9. ABATACEPT [Concomitant]
     Active Substance: ABATACEPT
     Indication: CTLA4 deficiency
     Dosage: UNK; LOADING DOSE; INTRAVENOUS (NOT SPECIFIED)
     Route: 042
  10. ABATACEPT [Concomitant]
     Active Substance: ABATACEPT
     Indication: CTLA4 deficiency
     Dosage: 87.5 MILLIGRAM, QW
     Route: 058

REACTIONS (1)
  - Drug ineffective [Unknown]
